FAERS Safety Report 9268169 (Version 1)
Quarter: 2013Q2

REPORT INFORMATION
  Report Type: Spontaneous
  Country: US (occurrence: US)
  Receive Date: 20130502
  Receipt Date: 20130502
  Transmission Date: 20140414
  Serious: Yes (Other)
  Sender: FDA-Public Use
  Company Number: US-ALEXION-A201201698

PATIENT
  Age: 61 Year
  Sex: Female

DRUGS (3)
  1. SOLIRIS 300MG [Suspect]
     Indication: PAROXYSMAL NOCTURNAL HAEMOGLOBINURIA
     Dosage: UNK
     Route: 042
     Dates: start: 201205
  2. CYCLOSPORINE [Concomitant]
     Indication: APLASTIC ANAEMIA
     Dosage: 100 MG, QD
     Route: 048
  3. PREDNISONE [Concomitant]
     Indication: APLASTIC ANAEMIA
     Dosage: 15 MG, QD
     Route: 048

REACTIONS (6)
  - Ligament sprain [Recovering/Resolving]
  - Fall [Recovered/Resolved with Sequelae]
  - Platelet count decreased [Unknown]
  - Contusion [Unknown]
  - Nasopharyngitis [Recovered/Resolved]
  - Haemoglobin decreased [Unknown]
